FAERS Safety Report 14556037 (Version 1)
Quarter: 2018Q1

REPORT INFORMATION
  Report Type: Spontaneous
  Country: IT (occurrence: IT)
  Receive Date: 20180221
  Receipt Date: 20180221
  Transmission Date: 20180509
  Serious: Yes (Other)
  Sender: FDA-Public Use
  Company Number: IT-ACCORD-063778

PATIENT
  Age: 54 Year
  Sex: Female
  Weight: 80 kg

DRUGS (2)
  1. GEMCITABIN ACCORD [Concomitant]
     Indication: LUNG NEOPLASM
     Dosage: STRENGRH - 100 MG/ML
     Route: 042
     Dates: start: 20180102
  2. CISPLATIN ACCORD HEALTHCARE [Suspect]
     Active Substance: CISPLATIN
     Indication: LUNG NEOPLASM
     Dosage: STRENGTH - 1 MG/ML
     Route: 042
     Dates: start: 20180102, end: 20180202

REACTIONS (3)
  - Rash generalised [Recovered/Resolved]
  - Erythema [Recovered/Resolved]
  - Bronchospasm [Recovered/Resolved]

NARRATIVE: CASE EVENT DATE: 20180202
